FAERS Safety Report 18614800 (Version 3)
Quarter: 2021Q1

REPORT INFORMATION
  Report Type: Spontaneous
  Country: FR (occurrence: FR)
  Receive Date: 20201214
  Receipt Date: 20210203
  Transmission Date: 20210419
  Serious: No
  Sender: FDA-Public Use
  Company Number: FR-JNJFOC-20201212747

PATIENT
  Age: 66 Year
  Sex: Male
  Weight: 95 kg

DRUGS (3)
  1. DUROGESIC [Suspect]
     Active Substance: FENTANYL
     Indication: PAIN
     Dosage: STRENGTH: 25.00 MCG/HR
     Route: 062
     Dates: start: 20201202, end: 20201202
  2. DUROGESIC [Suspect]
     Active Substance: FENTANYL
  3. DUROGESIC [Suspect]
     Active Substance: FENTANYL

REACTIONS (2)
  - Product adhesion issue [Unknown]
  - Underdose [Unknown]
